FAERS Safety Report 7080706-9 (Version None)
Quarter: 2010Q4

REPORT INFORMATION
  Report Type: 
  Country: None (occurrence: None)
  Receive Date: 20101025
  Receipt Date: 20101015
  Transmission Date: 20110411
  Serious: Yes (Hospitalization, Disabling, Other)
  Sender: FDA-Public Use
  Company Number: 2010SP001548

PATIENT
  Age: 83 Year
  Sex: Female

DRUGS (5)
  1. CELESTONE SOLUSPAN [Suspect]
     Indication: PAIN
     Dosage: 6
  2. BUPIVICAINE [Suspect]
     Indication: RADICULAR PAIN
     Dosage: 1 DF
  3. GABAPENTIN [Concomitant]
  4. NSAID [Concomitant]
  5. HYDROCODONE [Concomitant]

REACTIONS (6)
  - ASTHENIA [None]
  - HYPOAESTHESIA [None]
  - NEUROGENIC BLADDER [None]
  - NEUROGENIC BOWEL [None]
  - SENSORY DISTURBANCE [None]
  - SPINAL CORD INFARCTION [None]
